FAERS Safety Report 4990145-X (Version None)
Quarter: 2006Q2

REPORT INFORMATION
  Report Type: 
  Country: None (occurrence: None)
  Receive Date: 20060503
  Receipt Date: 20050927
  Transmission Date: 20061013
  Serious: Yes (Death, Hospitalization)
  Sender: FDA-Public Use
  Company Number: US-MERCK-0509USA04518

PATIENT
  Age: 70 Year
  Sex: Female
  Weight: 41 kg

DRUGS (5)
  1. VIOXX [Suspect]
     Indication: RHEUMATOID ARTHRITIS
     Route: 048
     Dates: start: 20011109, end: 20040929
  2. VIOXX [Suspect]
     Indication: PAIN
     Route: 048
     Dates: start: 20011109, end: 20040929
  3. CELEBREX [Concomitant]
     Route: 065
  4. BEXTRA [Concomitant]
     Route: 065
  5. TYLENOL ARTHRITIS EXTENDED RELIEF [Concomitant]
     Route: 065

REACTIONS (24)
  - ANAEMIA [None]
  - ARTHRITIS [None]
  - ASTHENIA [None]
  - BRONCHITIS ACUTE [None]
  - CEREBRAL HAEMATOMA [None]
  - CEREBRAL HAEMORRHAGE [None]
  - CEREBROVASCULAR ACCIDENT [None]
  - CHRONIC OBSTRUCTIVE PULMONARY DISEASE [None]
  - COMMINUTED FRACTURE [None]
  - CONVULSION [None]
  - CORNEAL ABRASION [None]
  - DYSPNOEA [None]
  - FALL [None]
  - FEMUR FRACTURE [None]
  - FOOT FRACTURE [None]
  - GASTROINTESTINAL TUBE INSERTION [None]
  - HEPATITIS B [None]
  - HYPERCALCAEMIA [None]
  - HYPERPARATHYROIDISM [None]
  - HYPONATRAEMIA [None]
  - POLYMYALGIA RHEUMATICA [None]
  - POLYTRAUMATISM [None]
  - RIB FRACTURE [None]
  - URINARY TRACT INFECTION [None]
